FAERS Safety Report 7036674-9 (Version None)
Quarter: 2010Q4

REPORT INFORMATION
  Report Type: 
  Country: None (occurrence: None)
  Receive Date: 20101011
  Receipt Date: 20101001
  Transmission Date: 20110411
  Serious: No
  Sender: FDA-Public Use
  Company Number: US-BIOGENIDEC-2010BI034622

PATIENT
  Age: 37 Year
  Sex: Female

DRUGS (4)
  1. TYSABRI [Suspect]
     Indication: MULTIPLE SCLEROSIS
     Route: 042
     Dates: start: 20050117, end: 20050117
  2. TYSABRI [Suspect]
     Route: 042
     Dates: start: 20070928, end: 20071031
  3. TYSABRI [Suspect]
     Route: 042
     Dates: start: 20090108
  4. AVONEX [Concomitant]
     Indication: MULTIPLE SCLEROSIS
     Route: 030
     Dates: start: 20030919, end: 20070531

REACTIONS (11)
  - ARTHRALGIA [None]
  - FATIGUE [None]
  - GAIT DISTURBANCE [None]
  - INSOMNIA [None]
  - MEMORY IMPAIRMENT [None]
  - MOOD SWINGS [None]
  - MUSCLE SPASMS [None]
  - MUSCULOSKELETAL DISORDER [None]
  - PAIN IN EXTREMITY [None]
  - READING DISORDER [None]
  - VISUAL IMPAIRMENT [None]
